FAERS Safety Report 6341938-8 (Version None)
Quarter: 2009Q3

REPORT INFORMATION
  Report Type: 
  Country: None (occurrence: None)
  Receive Date: 20090904
  Receipt Date: 20090901
  Transmission Date: 20100115
  Serious: Yes (Death, Hospitalization, Other)
  Sender: FDA-Public Use
  Company Number: PHHO2009TR10465

PATIENT
  Sex: Male
  Weight: 83.5 kg

DRUGS (2)
  1. RAD 666 RAD+TAB [Suspect]
     Indication: METASTATIC RENAL CELL CARCINOMA
     Dosage: UNK
  2. FENOFIBRATE [Concomitant]
     Indication: HYPERTRIGLYCERIDAEMIA
     Dosage: 250
     Route: 048
     Dates: start: 20090713, end: 20090720

REACTIONS (5)
  - FATIGUE [None]
  - HYPERTRIGLYCERIDAEMIA [None]
  - PAIN [None]
  - SUDDEN DEATH [None]
  - VOMITING [None]
